FAERS Safety Report 5126582-2 (Version None)
Quarter: 2006Q4

REPORT INFORMATION
  Report Type: 
  Country: None (occurrence: None)
  Receive Date: 20061012
  Receipt Date: 20061012
  Transmission Date: 20070319
  Serious: No
  Sender: FDA-Public Use
  Company Number: None

PATIENT
  Sex: Male
  Weight: 65.7716 kg

DRUGS (9)
  1. NITROQUICK 0.4MG ETHEX [Suspect]
     Indication: ANGINA PECTORIS
     Dosage: 0.4MG PRN S1
     Dates: start: 20060913, end: 20061010
  2. ASPIRIN [Concomitant]
  3. DIPYRIDAMOLE [Concomitant]
  4. ATENOLOL [Concomitant]
  5. FELODIPINE [Concomitant]
  6. ISOSORBIDE MONONITRATE [Concomitant]
  7. SYNTHROID [Concomitant]
  8. LOVASTATIN [Concomitant]
  9. MULTIVITS W/MINERALS [Concomitant]

REACTIONS (3)
  - CHEST PAIN [None]
  - DRUG INEFFECTIVE [None]
  - WRONG DRUG ADMINISTERED [None]
